FAERS Safety Report 8531847-8 (Version None)
Quarter: 2012Q3

REPORT INFORMATION
  Report Type: 
  Country: None (occurrence: None)
  Receive Date: 20120711
  Receipt Date: 20120628
  Transmission Date: 20120928
  Serious: Yes (Death)
  Sender: FDA-Public Use
  Company Number: JP-2012-15600

PATIENT
  Age: 92 Year
  Sex: Female

DRUGS (4)
  1. LANSOPRAZOLE [Concomitant]
  2. CARVEDILOL [Concomitant]
  3. SAMSCA [Suspect]
     Indication: FLUID RETENTION
     Dosage: 7.5 MG MILLIGRAM(S), QAM, ORAL
     Route: 048
     Dates: start: 20120601, end: 20120603
  4. LASIX [Concomitant]

REACTIONS (2)
  - CARDIAC FAILURE [None]
  - CONDITION AGGRAVATED [None]
